FAERS Safety Report 13806605 (Version 3)
Quarter: 2017Q3

REPORT INFORMATION
  Report Type: Spontaneous
  Country: JP (occurrence: JP)
  Receive Date: 20170728
  Receipt Date: 20170818
  Transmission Date: 20171127
  Serious: Yes (Hospitalization, Disabling, Other)
  Sender: FDA-Public Use
  Company Number: JP-GLAXOSMITHKLINE-JP2017JPN114183

PATIENT
  Age: 69 Year
  Sex: Female
  Weight: 40 kg

DRUGS (8)
  1. REQUIP [Suspect]
     Active Substance: ROPINIROLE HYDROCHLORIDE
     Indication: MOVEMENT DISORDER
     Dosage: 4 MG, 1D
     Route: 048
     Dates: start: 20130614, end: 20160610
  2. NOURIAST [Concomitant]
     Active Substance: ISTRADEFYLLINE
     Indication: PARKINSON^S DISEASE
     Dosage: UNK
  3. MENESIT [Concomitant]
     Active Substance: CARBIDOPA\LEVODOPA
     Dosage: UNK
  4. REQUIP [Suspect]
     Active Substance: ROPINIROLE HYDROCHLORIDE
     Indication: PARKINSON^S DISEASE
     Dosage: 2 MG, 1D
     Route: 048
     Dates: start: 20130517, end: 20130613
  5. REQUIP [Suspect]
     Active Substance: ROPINIROLE HYDROCHLORIDE
     Dosage: 4 MG, 1D
     Route: 048
     Dates: start: 20160801
  6. REQUIP [Suspect]
     Active Substance: ROPINIROLE HYDROCHLORIDE
     Dosage: 2 MG, 1D
     Route: 048
     Dates: start: 20160808, end: 20160814
  7. REQUIP [Suspect]
     Active Substance: ROPINIROLE HYDROCHLORIDE
     Dosage: 2 MG, 1D
     Route: 048
     Dates: start: 20160610, end: 20160731
  8. ARICEPT [Concomitant]
     Active Substance: DONEPEZIL HYDROCHLORIDE
     Dosage: UNK

REACTIONS (9)
  - Dyspnoea [Recovering/Resolving]
  - Dopamine dysregulation syndrome [Recovering/Resolving]
  - Sleep attacks [Recovering/Resolving]
  - Dyskinesia [Recovering/Resolving]
  - Delusion [Recovering/Resolving]
  - Hallucination [Recovering/Resolving]
  - Discomfort [Recovering/Resolving]
  - Depression [Recovering/Resolving]
  - Therapeutic response shortened [Unknown]

NARRATIVE: CASE EVENT DATE: 201407
